FAERS Safety Report 21945317 (Version 1)
Quarter: 2023Q1

REPORT INFORMATION
  Report Type: Spontaneous
  Country: FR (occurrence: FR)
  Receive Date: 20230202
  Receipt Date: 20230202
  Transmission Date: 20230417
  Serious: Yes (Hospitalization)
  Sender: FDA-Public Use
  Company Number: None

PATIENT
  Age: 74 Year
  Sex: Male
  Weight: 80 kg

DRUGS (3)
  1. TERBUTALINE [Suspect]
     Active Substance: TERBUTALINE
     Indication: Tachypnoea
     Dosage: UNK
     Dates: start: 20211111, end: 20211211
  2. FUROSEMIDE [Suspect]
     Active Substance: FUROSEMIDE
     Indication: Tachypnoea
     Dosage: 60 MILLIGRAM
     Route: 042
     Dates: start: 20211111
  3. XIGDUO XR [Suspect]
     Active Substance: DAPAGLIFLOZIN PROPANEDIOL\METFORMIN HYDROCHLORIDE
     Indication: Type 2 diabetes mellitus
     Dosage: 2 DOSAGE FORM, QD
     Route: 048

REACTIONS (1)
  - Lactic acidosis [Recovered/Resolved]

NARRATIVE: CASE EVENT DATE: 20211111
